FAERS Safety Report 25252369 (Version 1)
Quarter: 2025Q2

REPORT INFORMATION
  Report Type: Spontaneous
  Country: US (occurrence: None)
  Receive Date: 20250429
  Receipt Date: 20250429
  Transmission Date: 20250717
  Serious: Yes (Other)
  Sender: FDA-CTU
  Company Number: None

PATIENT
  Age: 47 Year
  Sex: Female
  Weight: 63.5 kg

DRUGS (3)
  1. REYVOW [Suspect]
     Active Substance: LASMIDITAN
  2. allergra/fexofenadine [Concomitant]
  3. MIRENA [Concomitant]
     Active Substance: LEVONORGESTREL

REACTIONS (9)
  - Drug ineffective [None]
  - Muscle twitching [None]
  - Hyperhidrosis [None]
  - Anxiety [None]
  - Visual impairment [None]
  - Heart rate irregular [None]
  - Panic disorder [None]
  - Dizziness [None]
  - Vertigo [None]

NARRATIVE: CASE EVENT DATE: 20250410
